FAERS Safety Report 9601719 (Version 2)
Quarter: 2013Q4

REPORT INFORMATION
  Report Type: Spontaneous
  Country: ES (occurrence: None)
  Receive Date: 20131002
  Receipt Date: 20131223
  Transmission Date: 20140711
  Serious: Yes (Hospitalization, Other)
  Sender: FDA-Public Use
  Company Number: DSM-2013-00884

PATIENT
  Age: 69 Year
  Sex: Male

DRUGS (1)
  1. IXIA PLUS [Suspect]
     Indication: HYPERTENSION
     Dosage: 1 IN 1 D
     Route: 048
     Dates: start: 201005, end: 20130820

REACTIONS (4)
  - Malabsorption [None]
  - Diarrhoea [None]
  - Renal failure acute [None]
  - Metabolic acidosis [None]
